FAERS Safety Report 10042186 (Version 2)
Quarter: 2014Q4

REPORT INFORMATION
  Report Type: Spontaneous
  Country: US (occurrence: US)
  Receive Date: 20140327
  Receipt Date: 20141120
  Transmission Date: 20150528
  Serious: Yes (Hospitalization, Other)
  Sender: FDA-Public Use
  Company Number: US-GLAXOSMITHKLINE-A1066314A

PATIENT
  Age: 75 Year
  Sex: Female

DRUGS (5)
  1. VENTOLIN [Suspect]
     Active Substance: ALBUTEROL SULFATE
     Indication: LUNG DISORDER
     Dosage: 2 PUFFS AS NEEDED
     Route: 055
  2. ADVAIR HFA [Suspect]
     Active Substance: FLUTICASONE PROPIONATE\SALMETEROL XINAFOATE
     Indication: LUNG DISORDER
     Dosage: 1 PUFF(S), BID
     Route: 055
  3. VENTOLIN [Suspect]
     Active Substance: ALBUTEROL SULFATE
     Indication: WHEEZING
  4. WATER PILL [Suspect]
     Active Substance: UNSPECIFIED INGREDIENT
     Indication: PRODUCT USED FOR UNKNOWN INDICATION
     Dosage: UNK
     Route: 065
  5. FLONASE [Suspect]
     Active Substance: FLUTICASONE PROPIONATE
     Indication: PRODUCT USED FOR UNKNOWN INDICATION
     Dosage: 1 SPRAY TWICE PER DAY
     Route: 045

REACTIONS (22)
  - Colonoscopy [Recovered/Resolved]
  - Lung disorder [Unknown]
  - Sputum increased [Unknown]
  - Cardiac failure [Not Recovered/Not Resolved]
  - Heart valve operation [Unknown]
  - Surgery [Unknown]
  - Confusional state [Recovering/Resolving]
  - Weight decreased [Unknown]
  - Cardiac operation [Unknown]
  - Blood disorder [Recovering/Resolving]
  - Wheezing [Unknown]
  - Abdominal operation [Unknown]
  - Endoscopy upper gastrointestinal tract [Recovered/Resolved]
  - Disturbance in attention [Not Recovered/Not Resolved]
  - Heart injury [Unknown]
  - Bone disorder [Unknown]
  - Intramedullary rod insertion [Unknown]
  - Transfusion [Recovered/Resolved]
  - Neoplasm malignant [Unknown]
  - Malaise [Recovering/Resolving]
  - Hypersomnia [Recovering/Resolving]
  - Memory impairment [Not Recovered/Not Resolved]

NARRATIVE: CASE EVENT DATE: 201208
